FAERS Safety Report 5767476-9 (Version None)
Quarter: 2008Q2

REPORT INFORMATION
  Report Type: 
  Country: None (occurrence: None)
  Receive Date: 20080611
  Receipt Date: 20080611
  Transmission Date: 20081010
  Serious: No
  Sender: FDA-Public Use
  Company Number: None

PATIENT
  Sex: Male
  Weight: 89.8122 kg

DRUGS (7)
  1. DIGITEK ACTAVIS [Suspect]
     Indication: ATRIAL FIBRILLATION
     Dosage: 1 QD, THEN 1/2 QD
  2. NEXIUM [Concomitant]
  3. POTASSIUM CHLORIDE [Concomitant]
  4. LASIX [Concomitant]
  5. LISINOPRIL [Concomitant]
  6. SIMVASTATIN [Concomitant]
  7. METOPROLOL TARTRATE [Concomitant]

REACTIONS (3)
  - CARDIOACTIVE DRUG LEVEL INCREASED [None]
  - DYSPNOEA [None]
  - FATIGUE [None]
